FAERS Safety Report 14233080 (Version 1)
Quarter: 2017Q4

REPORT INFORMATION
  Report Type: Report from Study
  Country: US (occurrence: US)
  Receive Date: 20171129
  Receipt Date: 20171129
  Transmission Date: 20180321
  Serious: Yes (Other)
  Sender: FDA-Public Use
  Company Number: US-JNJFOC-20170822330

PATIENT
  Age: 56 Year
  Sex: Female

DRUGS (10)
  1. NASONEX [Concomitant]
     Active Substance: MOMETASONE FUROATE
  2. GABAPENTIN. [Concomitant]
     Active Substance: GABAPENTIN
  3. ALBUTEROL SULFATE. [Concomitant]
     Active Substance: ALBUTEROL SULFATE
  4. MAXZIDE [Concomitant]
     Active Substance: HYDROCHLOROTHIAZIDE\TRIAMTERENE
  5. TRAZODONE [Concomitant]
     Active Substance: TRAZODONE HYDROCHLORIDE
  6. XANAX [Concomitant]
     Active Substance: ALPRAZOLAM
  7. DICLOFENAC [Concomitant]
     Active Substance: DICLOFENAC
  8. NEXIUM [Concomitant]
     Active Substance: ESOMEPRAZOLE MAGNESIUM
  9. SINGULAIR [Concomitant]
     Active Substance: MONTELUKAST SODIUM
  10. IMBRUVICA [Suspect]
     Active Substance: IBRUTINIB
     Indication: CHRONIC LYMPHOCYTIC LEUKAEMIA
     Route: 048
     Dates: start: 20170510

REACTIONS (3)
  - Ventricular extrasystoles [Not Recovered/Not Resolved]
  - Blood pressure increased [Unknown]
  - Heart rate irregular [Unknown]

NARRATIVE: CASE EVENT DATE: 201706
